FAERS Safety Report 12563627 (Version 1)
Quarter: 2016Q3

REPORT INFORMATION
  Report Type: Report from Study
  Country: BR (occurrence: BR)
  Receive Date: 20160715
  Receipt Date: 20160715
  Transmission Date: 20161109
  Serious: Yes (Hospitalization)
  Sender: FDA-Public Use
  Company Number: PHHY2016BR096243

PATIENT
  Sex: Female
  Weight: 58 kg

DRUGS (1)
  1. DIOVAN [Suspect]
     Active Substance: VALSARTAN
     Indication: HYPERTENSION
     Dosage: 1 DF (160 MG), QD
     Route: 048

REACTIONS (5)
  - Road traffic accident [Recovering/Resolving]
  - Malaise [Recovering/Resolving]
  - Blood pressure inadequately controlled [Recovering/Resolving]
  - Depression [Unknown]
  - Weight decreased [Recovering/Resolving]
